FAERS Safety Report 10657400 (Version 2)
Quarter: 2015Q1

REPORT INFORMATION
  Report Type: Spontaneous
  Country: FI (occurrence: None)
  Receive Date: 20141215
  Receipt Date: 20150113
  Transmission Date: 20150720
  Serious: Yes (Hospitalization)
  Sender: FDA-Public Use
  Company Number: MAC-14-087

PATIENT
  Age: 14 Day
  Sex: Male

DRUGS (4)
  1. KEFEXIN [Concomitant]
     Active Substance: CEPHALEXIN
  2. METRONIDAZOLE. [Concomitant]
     Active Substance: METRONIDAZOLE
  3. METHERGIN [Suspect]
     Active Substance: METHYLERGONOVINE MALEATE
     Dosage: MATERNAL DOSE: 1 TABLET
  4. LACTOBACILLUS [Concomitant]
     Active Substance: LACTOBACILLUS ACIDOPHILUS

REACTIONS (15)
  - Exposure during breast feeding [None]
  - Pyelonephritis [None]
  - C-reactive protein increased [None]
  - Respiratory rate increased [None]
  - Pyrexia [None]
  - Somnolence [None]
  - Tachycardia [None]
  - Dyspnoea [None]
  - Toxicity to various agents [None]
  - Feeding disorder neonatal [None]
  - Sepsis [None]
  - Urinary tract infection [None]
  - Hypertension [None]
  - Diarrhoea [None]
  - Fatigue [None]

NARRATIVE: CASE EVENT DATE: 20140605
